FAERS Safety Report 6897498-6 (Version None)
Quarter: 2010Q3

REPORT INFORMATION
  Report Type: 
  Country: None (occurrence: None)
  Receive Date: 20100802
  Receipt Date: 20070612
  Transmission Date: 20110219
  Serious: No
  Sender: FDA-Public Use
  Company Number: US-PFIZER INC-2007049529

PATIENT
  Sex: Female
  Weight: 46.818 kg

DRUGS (5)
  1. LYRICA [Suspect]
     Indication: HYPOAESTHESIA
     Dates: start: 20070611, end: 20070612
  2. DARVOCET [Concomitant]
  3. MOTRIN [Concomitant]
  4. LEVSIN [Concomitant]
  5. PREVACID [Concomitant]

REACTIONS (6)
  - ABNORMAL SENSATION IN EYE [None]
  - DISTURBANCE IN ATTENTION [None]
  - HUNGER [None]
  - SOMNOLENCE [None]
  - VISION BLURRED [None]
  - VISUAL ACUITY REDUCED [None]
